FAERS Safety Report 12673749 (Version 1)
Quarter: 2016Q3

REPORT INFORMATION
  Report Type: Report from Study
  Country: US (occurrence: US)
  Receive Date: 20160822
  Receipt Date: 20160822
  Transmission Date: 20161109
  Serious: Yes (Hospitalization)
  Sender: FDA-Public Use
  Company Number: US-EISAI MEDICAL RESEARCH-EC-2016-016306

PATIENT
  Age: 68 Year
  Sex: Female
  Weight: 126.09 kg

DRUGS (19)
  1. MONTELUKAST SODIUM. [Concomitant]
     Active Substance: MONTELUKAST SODIUM
  2. LYRICA [Concomitant]
     Active Substance: PREGABALIN
  3. ASPIRIN. [Concomitant]
     Active Substance: ASPIRIN
  4. LENVIMA [Suspect]
     Active Substance: LENVATINIB
     Route: 048
     Dates: start: 201605, end: 201608
  5. LENVIMA [Suspect]
     Active Substance: LENVATINIB
     Indication: THYROID CANCER
     Route: 048
     Dates: start: 20160407, end: 201605
  6. ALPRAZOLAM. [Concomitant]
     Active Substance: ALPRAZOLAM
  7. ALLOPURINOL. [Concomitant]
     Active Substance: ALLOPURINOL
  8. PROCHLORPERAZINE MALEATE. [Concomitant]
     Active Substance: PROCHLORPERAZINE MALEATE
  9. LISINOPRIL. [Concomitant]
     Active Substance: LISINOPRIL
  10. METOPROLOL. [Concomitant]
     Active Substance: METOPROLOL
  11. TRAZODONE [Concomitant]
     Active Substance: TRAZODONE HYDROCHLORIDE
  12. PRAVASTATIN. [Concomitant]
     Active Substance: PRAVASTATIN
  13. SERTRALINE [Concomitant]
     Active Substance: SERTRALINE HYDROCHLORIDE
  14. NORCO [Concomitant]
     Active Substance: ACETAMINOPHEN\HYDROCODONE BITARTRATE
  15. CLOPIDOGREL [Concomitant]
     Active Substance: CLOPIDOGREL BISULFATE
  16. OMEPRAZOLE. [Concomitant]
     Active Substance: OMEPRAZOLE
  17. LORAZEPAM. [Concomitant]
     Active Substance: LORAZEPAM
  18. LEVOTHYROXINE. [Concomitant]
     Active Substance: LEVOTHYROXINE
  19. GLIPIZIDE. [Concomitant]
     Active Substance: GLIPIZIDE

REACTIONS (12)
  - Decreased appetite [Recovering/Resolving]
  - Insomnia [Recovering/Resolving]
  - Skin ulcer [Recovering/Resolving]
  - Blood glucose increased [Unknown]
  - Diarrhoea [Recovering/Resolving]
  - Pain [Unknown]
  - Fatigue [Unknown]
  - Asthenia [Recovering/Resolving]
  - Fall [Recovering/Resolving]
  - Nausea [Recovering/Resolving]
  - Weight decreased [Recovering/Resolving]
  - Blood pressure increased [Unknown]

NARRATIVE: CASE EVENT DATE: 2016
